FAERS Safety Report 4745788-5 (Version None)
Quarter: 2005Q3

REPORT INFORMATION
  Report Type: 
  Country: None (occurrence: None)
  Receive Date: 20050815
  Receipt Date: 20050815
  Transmission Date: 20060218
  Serious: Yes (Hospitalization)
  Sender: FDA-Public Use
  Company Number: None

PATIENT
  Age: 72 Year
  Sex: Male
  Weight: 65.318 kg

DRUGS (1)
  1. TERAZOSIN     1MG [Suspect]
     Indication: BENIGN PROSTATIC HYPERPLASIA
     Dosage: 1 DAILY
     Dates: start: 20050713, end: 20050713

REACTIONS (3)
  - BLOOD PRESSURE ORTHOSTATIC ABNORMAL [None]
  - DEHYDRATION [None]
  - SYNCOPE [None]
